FAERS Safety Report 6343052-4 (Version None)
Quarter: 2009Q3

REPORT INFORMATION
  Report Type: 
  Country: None (occurrence: None)
  Receive Date: 20090903
  Receipt Date: 20090814
  Transmission Date: 20100115
  Serious: Yes (Death)
  Sender: FDA-Public Use
  Company Number: 20090376

PATIENT
  Age: 1 Year
  Sex: Male
  Weight: 9 kg

DRUGS (6)
  1. VENOFER [Suspect]
     Indication: RENAL FAILURE CHRONIC
     Dosage: SALINE/30 MIN INTRAVENOUS 40 MG IN 40 ML
     Route: 042
     Dates: start: 20090608, end: 20090608
  2. ALFACALCIDOL [Concomitant]
  3. EPOGEN [Concomitant]
  4. IRON DEXTRAN [Concomitant]
  5. ORAL IRON [Concomitant]
  6. POTASSIC CARBONATE [Concomitant]

REACTIONS (5)
  - ANAPHYLACTOID REACTION [None]
  - BRADYCARDIA [None]
  - CIRCULATORY COLLAPSE [None]
  - EMBOLISM [None]
  - ERYTHEMA [None]
